FAERS Safety Report 4332571-8 (Version None)
Quarter: 2004Q1

REPORT INFORMATION
  Report Type: 
  Country: None (occurrence: None)
  Receive Date: 20040330
  Receipt Date: 20040315
  Transmission Date: 20041129
  Serious: Yes (Death)
  Sender: FDA-Public Use
  Company Number: JP-JNJFOC-20040303817

PATIENT
  Age: 69 Year
  Sex: Female

DRUGS (1)
  1. FENTANYL [Suspect]
     Indication: CANCER PAIN
     Dosage: 2.5 MG, 1 IN 3 DAY, TRANSDERMAL
     Route: 062
     Dates: start: 20040224, end: 20040303

REACTIONS (2)
  - ASTHENIA [None]
  - GASTRIC CANCER RECURRENT [None]
